FAERS Safety Report 6753837-8 (Version None)
Quarter: 2010Q2

REPORT INFORMATION
  Report Type: 
  Country: None (occurrence: None)
  Receive Date: 20100601
  Receipt Date: 20100521
  Transmission Date: 20101027
  Serious: Yes (Hospitalization)
  Sender: FDA-Public Use
  Company Number: 2009SP023954

PATIENT
  Age: 43 Year
  Sex: Male

DRUGS (10)
  1. PEG-INTRON [Suspect]
     Indication: HEPATITIS C
     Dosage: 120 MCG; QW; SC
     Route: 058
     Dates: start: 20090615, end: 20090810
  2. RIBAVIRIN [Suspect]
     Indication: HEPATITIS C
     Dosage: 1000 MG; QD; PO
     Route: 048
     Dates: start: 20090615, end: 20090810
  3. CITALOPRAM [Concomitant]
  4. MIRTAZAPINE [Concomitant]
  5. METHADONE [Concomitant]
  6. TRAZODONE HCL [Concomitant]
  7. . [Concomitant]
  8. CELEXA [Concomitant]
  9. SALBUTAMOL [Concomitant]
  10. VITAMIN B COMPLEX CAP [Concomitant]

REACTIONS (11)
  - AFFECTIVE DISORDER [None]
  - ANXIETY [None]
  - CONDITION AGGRAVATED [None]
  - DRUG DEPENDENCE [None]
  - IRRITABILITY [None]
  - MAJOR DEPRESSION [None]
  - PAIN [None]
  - PNEUMONIA [None]
  - POST-TRAUMATIC STRESS DISORDER [None]
  - RED BLOOD CELL COUNT DECREASED [None]
  - SUICIDAL IDEATION [None]
